FAERS Safety Report 5029419-5 (Version None)
Quarter: 2006Q2

REPORT INFORMATION
  Report Type: 
  Country: None (occurrence: None)
  Receive Date: 20060613
  Receipt Date: 20060531
  Transmission Date: 20061013
  Serious: Yes (Hospitalization)
  Sender: FDA-Public Use
  Company Number: 2006056713

PATIENT
  Age: 71 Year
  Sex: Male

DRUGS (7)
  1. LIPITOR [Suspect]
     Indication: HYPERLIPIDAEMIA
     Dosage: 10 MG (DAILY), ORAL
     Route: 048
     Dates: start: 20051104, end: 20060323
  2. ALLOPURINOL [Suspect]
     Indication: HYPERURICAEMIA
     Dosage: 200 MG (DAILY), ORAL
     Route: 048
     Dates: start: 20060112, end: 20060323
  3. BERIZYM (ENZYMES NOS) [Concomitant]
  4. OMEPRAZOLE [Concomitant]
  5. HALCION [Concomitant]
  6. HARNAL (TAMSULOSIN HYDROCHLORIDE) [Concomitant]
  7. URINORM (BENZBROMARONE) [Concomitant]

REACTIONS (1)
  - DIABETES MELLITUS [None]
